FAERS Safety Report 5126852-8 (Version None)
Quarter: 2006Q4

REPORT INFORMATION
  Report Type: 
  Country: None (occurrence: None)
  Receive Date: 20061013
  Receipt Date: 20060920
  Transmission Date: 20070319
  Serious: Yes (Hospitalization, Other)
  Sender: FDA-Public Use
  Company Number: JP-BAYER-200614208GDS

PATIENT

DRUGS (2)
  1. ADALAT [Suspect]
     Indication: HYPERTENSION
     Route: 064
     Dates: start: 19991214, end: 19991216
  2. MAGNESOL [Suspect]
     Indication: HYPERTENSION
     Route: 064
     Dates: start: 19991214, end: 19991216

REACTIONS (6)
  - CAESAREAN SECTION [None]
  - DRUG EXPOSURE DURING PREGNANCY [None]
  - FOETAL DISTRESS SYNDROME [None]
  - HYPOTENSION [None]
  - PREMATURE BABY [None]
  - PREMATURE LABOUR [None]
